FAERS Safety Report 8118146-3 (Version None)
Quarter: 2011Q4

REPORT INFORMATION
  Report Type: 
  Country: None (occurrence: None)
  Receive Date: 20111227
  Receipt Date: 20111011
  Transmission Date: 20120403
  Serious: No
  Sender: FDA-Public Use
  Company Number: PHEH2011US06609

PATIENT
  Age: 48 Year
  Sex: Female

DRUGS (5)
  1. GABAPENTIN [Concomitant]
  2. GILENYA [Suspect]
     Dosage: 0.5 MG, QD, ORAL
     Route: 048
  3. EFFEXOR [Concomitant]
  4. VITAMIN D [Concomitant]
  5. FLAXSEED OIL (LINUM USITATISSIMUM SEED OIL) [Concomitant]

REACTIONS (3)
  - LETHARGY [None]
  - WEIGHT INCREASED [None]
  - FATIGUE [None]
